FAERS Safety Report 8957461 (Version 1)
Quarter: 2012Q4

REPORT INFORMATION
  Report Type: 
  Country: US (occurrence: US)
  Receive Date: 20121210
  Receipt Date: 20121210
  Transmission Date: 20130627
  Serious: Yes (Death)
  Sender: FDA-Public Use
  Company Number: US-ASTELLAS-2012US010179

PATIENT
  Sex: Male

DRUGS (1)
  1. XTANDI [Suspect]
     Indication: PROSTATE CANCER
     Dosage: 40 mg, qid
     Route: 048
     Dates: start: 20120921

REACTIONS (3)
  - Malignant neoplasm progression [Fatal]
  - Dysphagia [Unknown]
  - Back pain [Unknown]
